FAERS Safety Report 5134534-1 (Version None)
Quarter: 2006Q4

REPORT INFORMATION
  Report Type: 
  Country: None (occurrence: None)
  Receive Date: 20061019
  Receipt Date: 20061012
  Transmission Date: 20070319
  Serious: Yes (Other)
  Sender: FDA-Public Use
  Company Number: 2006-05184

PATIENT
  Age: 70 Year
  Sex: Male

DRUGS (2)
  1. TRELSTAR LA (WITH CLIP'N'JECT) (WATSON LABORATORIES) (TRIPTORELIN PAMO [Suspect]
     Indication: PROSTATE CANCER
     Dosage: 11.25 MG, SINGLE, INTRAMUSCULAR
     Route: 030
     Dates: start: 20030901, end: 20031101
  2. ANDROCUR (CYPROTERONE ACETATE) [Concomitant]

REACTIONS (5)
  - BACK PAIN [None]
  - BONE DENSITY DECREASED [None]
  - LUMBAR VERTEBRAL FRACTURE [None]
  - OSTEOPOROSIS [None]
  - SPINAL COMPRESSION FRACTURE [None]
